FAERS Safety Report 11326889 (Version 1)
Quarter: 2015Q3

REPORT INFORMATION
  Report Type: Spontaneous
  Country: US (occurrence: None)
  Receive Date: 20150730
  Receipt Date: 20150730
  Transmission Date: 20151125
  Serious: Yes (Death, Hospitalization)
  Sender: FDA-Public Use
  Company Number: None

PATIENT
  Age: 67 Year
  Sex: Female
  Weight: 82.5 kg

DRUGS (2)
  1. DOCETAXEL. [Suspect]
     Active Substance: DOCETAXEL
     Indication: BREAST CANCER
     Route: 042
     Dates: start: 20150331, end: 20150623
  2. CYCLOPHOSPHAMIDE. [Suspect]
     Active Substance: CYCLOPHOSPHAMIDE
     Indication: BREAST CANCER
     Route: 042
     Dates: start: 20150331, end: 20150623

REACTIONS (6)
  - Neutropenic sepsis [None]
  - Hypotension [None]
  - Cardio-respiratory arrest [None]
  - Hypertension [None]
  - Blood urea increased [None]
  - Blood creatinine increased [None]

NARRATIVE: CASE EVENT DATE: 20150701
